FAERS Safety Report 5880031-5 (Version None)
Quarter: 2008Q3

REPORT INFORMATION
  Report Type: 
  Country: None (occurrence: None)
  Receive Date: 20080911
  Receipt Date: 20080911
  Transmission Date: 20090109
  Serious: Yes (Life-Threatening, Other)
  Sender: FDA-Public Use
  Company Number: None

PATIENT
  Sex: Female
  Weight: 55.3388 kg

DRUGS (2)
  1. NOVOLIN N [Suspect]
     Indication: DIABETES MELLITUS
     Dosage: ^N^ 22 UNITS AM 10:00 AM 10 UNITS PM 6:00 PM
     Dates: start: 20080718, end: 20080815
  2. NOVOLIN R [Suspect]
     Indication: DIABETES MELLITUS
     Dosage: ^R^ 10 UNITS AM SLIDING SCALE SLIDING SCALE PM 10-15 UNITS
     Dates: start: 20080718, end: 20080815

REACTIONS (7)
  - BALANCE DISORDER [None]
  - DIZZINESS [None]
  - GASTRIC DISORDER [None]
  - MALAISE [None]
  - PHARMACEUTICAL PRODUCT COMPLAINT [None]
  - VISUAL ACUITY REDUCED [None]
  - VISUAL IMPAIRMENT [None]
